FAERS Safety Report 5274308-4 (Version None)
Quarter: 2007Q1

REPORT INFORMATION
  Report Type: 
  Country: None (occurrence: None)
  Receive Date: 20070323
  Receipt Date: 20070312
  Transmission Date: 20070707
  Serious: Yes (Other)
  Sender: FDA-Public Use
  Company Number: US-SANOFI-SYNTHELABO-A03200702127

PATIENT
  Sex: Female

DRUGS (12)
  1. PAROXETINE HCL [Concomitant]
     Dosage: UNK
     Route: 065
  2. AMOX TR-K [Concomitant]
     Dosage: UNK
     Route: 065
  3. FLONASE [Concomitant]
     Dosage: UNK
     Route: 065
  4. MIRTAZAPINE [Concomitant]
     Dosage: UNK
     Route: 065
  5. CIPRODEX [Concomitant]
     Dosage: UNK
     Route: 065
  6. DIFLUCAN [Concomitant]
     Dosage: UNK
     Route: 065
  7. XENICAL [Concomitant]
     Dosage: UNK
     Route: 065
  8. TOPAMAX [Concomitant]
     Dosage: UNK
     Route: 065
  9. ACIPHEX [Concomitant]
     Dosage: UNK
     Route: 065
  10. WELLBUTRIN [Concomitant]
     Dosage: UNK
     Route: 065
  11. PAXIL [Concomitant]
     Dosage: UNK
     Route: 065
  12. AMBIEN [Suspect]
     Indication: INSOMNIA
     Route: 048
     Dates: start: 20031105, end: 20060301

REACTIONS (6)
  - AMNESIA [None]
  - DEPENDENCE [None]
  - EATING DISORDER [None]
  - HALLUCINATION [None]
  - SLEEP WALKING [None]
  - WEIGHT INCREASED [None]
